FAERS Safety Report 16769377 (Version 1)
Quarter: 2019Q3

REPORT INFORMATION
  Report Type: Other
  Country: TR (occurrence: TR)
  Receive Date: 20190903
  Receipt Date: 20190903
  Transmission Date: 20191005
  Serious: Yes (Hospitalization)
  Sender: FDA-Public Use
  Company Number: TR-B.BRAUN MEDICAL INC.-2073974

PATIENT
  Age: 31 Year
  Sex: Female

DRUGS (2)
  1. LIDOCAINE HYDROCHLORIDE AND DEXTROSE [Suspect]
     Active Substance: DEXTROSE\LIDOCAINE HYDROCHLORIDE
     Route: 042
  2. ARTICAINE [Concomitant]
     Active Substance: ARTICAINE
     Route: 042

REACTIONS (2)
  - Upper motor neurone lesion [None]
  - Kounis syndrome [None]
